FAERS Safety Report 14587892 (Version 4)
Quarter: 2018Q3

REPORT INFORMATION
  Report Type: Report from Study
  Country: DE (occurrence: DE)
  Receive Date: 20180301
  Receipt Date: 20180929
  Transmission Date: 20181010
  Serious: Yes (Other)
  Sender: FDA-Public Use
  Company Number: PHHY2018DE021592

PATIENT
  Sex: Female
  Weight: 79.2 kg

DRUGS (3)
  1. KISQALI [Suspect]
     Active Substance: RIBOCICLIB
     Indication: BREAST CANCER METASTATIC
     Dosage: 3 DF (200 MG), QD,1?21,7D  PAUSE
     Route: 048
     Dates: start: 20180105, end: 20180320
  2. KISQALI [Suspect]
     Active Substance: RIBOCICLIB
     Dosage: 2 DF (200 MG), QD
     Route: 048
     Dates: start: 20180321
  3. ANASTROZOLE. [Suspect]
     Active Substance: ANASTROZOLE
     Indication: BREAST CANCER METASTATIC
     Dosage: 1 MG, QD
     Route: 048
     Dates: start: 20180105

REACTIONS (4)
  - Concomitant disease progression [Unknown]
  - Chronic kidney disease [Unknown]
  - Dyspnoea [Recovering/Resolving]
  - Cough [Recovered/Resolved]

NARRATIVE: CASE EVENT DATE: 201801
